FAERS Safety Report 13697572 (Version 1)
Quarter: 2017Q2

REPORT INFORMATION
  Report Type: Spontaneous
  Country: US (occurrence: US)
  Receive Date: 20170628
  Receipt Date: 20170628
  Transmission Date: 20170830
  Serious: No
  Sender: FDA-Public Use
  Company Number: US-BAXTER-2017BAX025459

PATIENT

DRUGS (9)
  1. K CHLORIDE [Suspect]
     Active Substance: POTASSIUM CHLORIDE
     Indication: PRODUCT USED FOR UNKNOWN INDICATION
     Dosage: STRENGTH: 2 MEQ/ML
     Route: 042
  2. DEXTROSE. [Suspect]
     Active Substance: DEXTROSE
     Indication: PRODUCT USED FOR UNKNOWN INDICATION
     Route: 042
  3. NA PHOSPHATE [Suspect]
     Active Substance: SODIUM PHOSPHATE
     Indication: PRODUCT USED FOR UNKNOWN INDICATION
     Dosage: STRENGTH: 3MMOL/ML
     Route: 042
  4. NA CHLORIDE [Suspect]
     Active Substance: SODIUM CHLORIDE
     Indication: PRODUCT USED FOR UNKNOWN INDICATION
     Dosage: STRENGTH: 4MEQ/ML
     Route: 042
  5. MULTITRACE-5 [Suspect]
     Active Substance: CHROMIC CHLORIDE\CUPRIC SULFATE\MANGANESE SULFATE\SELENIOUS ACID\ZINC SULFATE HEPTAHYDRATE
     Indication: PRODUCT USED FOR UNKNOWN INDICATION
     Route: 042
  6. MAGNESIUM SULFATE. [Suspect]
     Active Substance: MAGNESIUM SULFATE
     Indication: PRODUCT USED FOR UNKNOWN INDICATION
     Route: 042
  7. STERILE WATER [Suspect]
     Active Substance: WATER
     Indication: PRODUCT USED FOR UNKNOWN INDICATION
     Route: 042
  8. INFUVITE ADULT [Suspect]
     Active Substance: .ALPHA.-TOCOPHEROL ACETATE\ASCORBIC ACID\BIOTIN\CHOLECALCIFEROL\CYANOCOBALAMIN\DEXPANTHENOL\FOLIC ACID\NIACINAMIDE\PHYTONADIONE\PYRIDOXINE HYDROCHLORIDE\RIBOFLAVIN 5^-PHOSPHATE SODIUM\THIAMINE HYDROCHLORIDE\VITAMIN A PALMITATE
     Indication: PRODUCT USED FOR UNKNOWN INDICATION
     Route: 042
  9. TRAVASOL [Suspect]
     Active Substance: ALANINE\ARGININE\GLYCINE\HISTIDINE\ISOLEUCINE\LEUCINE\LYSINE HYDROCHLORIDE\METHIONINE\PHENYLALANINE\PROLINE\SERINE\THREONINE\TRYPTOPHAN\TYROSINE\VALINE
     Indication: PRODUCT USED FOR UNKNOWN INDICATION
     Route: 042

REACTIONS (3)
  - Product preparation error [Unknown]
  - Incorrect product formulation administered [Unknown]
  - Blood glucose increased [Recovered/Resolved]

NARRATIVE: CASE EVENT DATE: 20170610
